FAERS Safety Report 17486193 (Version 3)
Quarter: 2020Q3

REPORT INFORMATION
  Report Type: Report from Study
  Country: None (occurrence: US)
  Receive Date: 20200303
  Receipt Date: 20200904
  Transmission Date: 20201102
  Serious: Yes (Other)
  Sender: FDA-Public Use
  Company Number: US-ABBVIE-18K-163-2462078-00

PATIENT
  Age: 63 Year
  Sex: Male
  Weight: 74.91 kg

DRUGS (6)
  1. HUMIRA [Suspect]
     Active Substance: ADALIMUMAB
     Route: 058
     Dates: start: 20190121, end: 2019
  2. HUMIRA [Suspect]
     Active Substance: ADALIMUMAB
     Route: 058
  3. HUMIRA [Suspect]
     Active Substance: ADALIMUMAB
     Route: 058
     Dates: start: 20190322, end: 201908
  4. HUMIRA [Suspect]
     Active Substance: ADALIMUMAB
     Route: 058
     Dates: start: 20200220
  5. HUMIRA [Suspect]
     Active Substance: ADALIMUMAB
     Indication: PSORIATIC ARTHROPATHY
     Route: 058
     Dates: start: 20180322
  6. HUMIRA [Suspect]
     Active Substance: ADALIMUMAB
     Route: 058
     Dates: start: 20190211, end: 2019

REACTIONS (25)
  - Hypoacusis [Not Recovered/Not Resolved]
  - Inflammation [Not Recovered/Not Resolved]
  - Paraesthesia [Not Recovered/Not Resolved]
  - Ear discomfort [Unknown]
  - Dysphagia [Not Recovered/Not Resolved]
  - Cerebrospinal fluid leakage [Unknown]
  - Hypoacusis [Unknown]
  - Surgical failure [Unknown]
  - Dizziness [Not Recovered/Not Resolved]
  - Musculoskeletal stiffness [Not Recovered/Not Resolved]
  - Muscle spasms [Not Recovered/Not Resolved]
  - Nasal septal operation [Unknown]
  - Pain in extremity [Not Recovered/Not Resolved]
  - Post procedural complication [Unknown]
  - Paranasal sinus discomfort [Not Recovered/Not Resolved]
  - Brain injury [Unknown]
  - Functional endoscopic sinus surgery [Unknown]
  - Sinus disorder [Unknown]
  - Polyp [Unknown]
  - Peripheral swelling [Recovered/Resolved]
  - Ear infection [Not Recovered/Not Resolved]
  - Ear discomfort [Not Recovered/Not Resolved]
  - Chronic sinusitis [Not Recovered/Not Resolved]
  - Nasal polyps [Unknown]
  - Dyspnoea [Not Recovered/Not Resolved]

NARRATIVE: CASE EVENT DATE: 2018
